APPROVED DRUG PRODUCT: PROTAMINE SULFATE
Active Ingredient: PROTAMINE SULFATE
Strength: 50MG/5ML (10MG/ML)
Dosage Form/Route: SOLUTION;INTRAVENOUS
Application: A089454 | Product #001
Applicant: FRESENIUS KABI USA LLC
Approved: Apr 7, 1987 | RLD: No | RS: Yes | Type: RX